FAERS Safety Report 10008850 (Version 1)
Quarter: 2014Q1

REPORT INFORMATION
  Report Type: Spontaneous
  Country: US (occurrence: US)
  Receive Date: 20140312
  Receipt Date: 20140312
  Transmission Date: 20141002
  Serious: No
  Sender: FDA-Public Use
  Company Number: US-INCYTE CORPORATION-2012IN000764

PATIENT
  Sex: Female

DRUGS (5)
  1. JAKAFI [Suspect]
     Indication: MYELOFIBROSIS
     Dosage: 20 MG, BID
     Route: 048
  2. LUNESTA [Concomitant]
  3. XANAX [Concomitant]
  4. ROPINIROLE [Concomitant]
  5. HIGH BLOOD PRESSURE MEDICATION (NOS) [Concomitant]
     Indication: BLOOD PRESSURE INCREASED

REACTIONS (3)
  - Restless legs syndrome [Unknown]
  - Insomnia [Unknown]
  - Diarrhoea [Unknown]
